FAERS Safety Report 19665909 (Version 1)
Quarter: 2021Q3

REPORT INFORMATION
  Report Type: Spontaneous
  Country: US (occurrence: US)
  Receive Date: 20210806
  Receipt Date: 20210806
  Transmission Date: 20211014
  Serious: No
  Sender: FDA-Public Use
  Company Number: US-BAUSCH-BL-2021-024481

PATIENT
  Sex: Female

DRUGS (3)
  1. PROLENSA [Suspect]
     Active Substance: BROMFENAC SODIUM
     Indication: POSTOPERATIVE CARE
     Dosage: ONE DROP IN EACH EYES TWICE DAILY
     Route: 047
     Dates: end: 2021
  2. ALPHAGAN P [Concomitant]
     Active Substance: BRIMONIDINE TARTRATE
     Indication: PRODUCT USED FOR UNKNOWN INDICATION
  3. PROLENSA [Suspect]
     Active Substance: BROMFENAC SODIUM
     Indication: EYE INFLAMMATION
     Dosage: STARTED APPROXIMATELY 3 YEARS AGO, ONE DROP IN EACH EYE
     Route: 047
     Dates: start: 2018

REACTIONS (4)
  - Intraocular pressure increased [Recovered/Resolved]
  - Therapy interrupted [Unknown]
  - Off label use [Unknown]
  - Intentional product use issue [Unknown]

NARRATIVE: CASE EVENT DATE: 2021
